FAERS Safety Report 23208105 (Version 1)
Quarter: 2023Q4

REPORT INFORMATION
  Report Type: Report from Study
  Country: AU (occurrence: None)
  Receive Date: 20231121
  Receipt Date: 20231121
  Transmission Date: 20240110
  Serious: Yes (Hospitalization)
  Sender: FDA-Public Use
  Company Number: AU-ROCHE-3409023

PATIENT
  Age: 70 Year
  Sex: Female
  Weight: 56.7 kg

DRUGS (13)
  1. ATEZOLIZUMAB [Suspect]
     Active Substance: ATEZOLIZUMAB
     Indication: HER2 positive breast cancer
     Dosage: ON 04/JUL/2023 AND 15/AUG/2023 MOST RECENT DOSE OF BLINDED ATEZOLIZUMAB PRIOR TO AE AND SAE.
     Route: 041
     Dates: start: 20221221
  2. ADO-TRASTUZUMAB EMTANSINE [Suspect]
     Active Substance: ADO-TRASTUZUMAB EMTANSINE
     Indication: HER2 positive breast cancer
     Dosage: ON 04/JUL/2023 THE MOST RECENT DOSE OF 217 MG/KG PRIOR TO AE AND SAE.
     Route: 042
     Dates: start: 20221221
  3. ADO-TRASTUZUMAB EMTANSINE [Suspect]
     Active Substance: ADO-TRASTUZUMAB EMTANSINE
     Dosage: ON 15/AUG/2023 MOST RECENT DOSE 217 MG/KG OF TRASTUZUMAB EMTANSINE PRIOR TO AE AND SAE.
     Route: 042
  4. LYRICA [Concomitant]
     Active Substance: PREGABALIN
     Indication: Neuropathy peripheral
     Dates: start: 2022
  5. CALCIUM [Concomitant]
     Active Substance: CALCIUM
     Indication: Osteoarthritis
     Dates: start: 2020
  6. MANGANESE [Concomitant]
     Active Substance: MANGANESE CHLORIDE
     Indication: Osteoarthritis
     Dates: start: 2020
  7. ACETAMINOPHEN [Concomitant]
     Active Substance: ACETAMINOPHEN
     Indication: Headache
     Dates: start: 20221225
  8. ACETAMINOPHEN [Concomitant]
     Active Substance: ACETAMINOPHEN
     Indication: Arthralgia
     Dates: start: 20230613
  9. ACETAMINOPHEN [Concomitant]
     Active Substance: ACETAMINOPHEN
     Indication: Myalgia
  10. 3M CAVILON ANTIFUNGAL [Concomitant]
     Active Substance: MICONAZOLE NITRATE
     Indication: Skin discolouration
     Dates: start: 20230127, end: 202308
  11. MOVICOL [Concomitant]
     Active Substance: POLYETHYLENE GLYCOL 3350\POTASSIUM CHLORIDE\SODIUM BICARBONATE\SODIUM CHLORIDE
     Indication: Constipation
     Dates: start: 20230503
  12. SORBOLENE [Concomitant]
     Indication: Rash pruritic
     Dates: start: 20230613
  13. AMLODIPINE [Concomitant]
     Active Substance: AMLODIPINE BESYLATE
     Indication: Hypertension
     Dates: start: 20230711

REACTIONS (1)
  - Paronychia [Not Recovered/Not Resolved]

NARRATIVE: CASE EVENT DATE: 20230725
